FAERS Safety Report 20947102 (Version 1)
Quarter: 2022Q2

REPORT INFORMATION
  Report Type: Spontaneous
  Country: US (occurrence: US)
  Receive Date: 20220610
  Receipt Date: 20220610
  Transmission Date: 20220721
  Serious: Yes (Other)
  Sender: FDA-Public Use
  Company Number: US-AMGEN-USASP2022090290

PATIENT
  Sex: Female

DRUGS (1)
  1. MVASI [Suspect]
     Active Substance: BEVACIZUMAB-AWWB
     Indication: Meningioma
     Dosage: 700 MILLIGRAM, WOULD HAVE BEEN CYCLE 3 DAY15
     Route: 065

REACTIONS (1)
  - Haemoglobin decreased [Unknown]
